FAERS Safety Report 8458547-7 (Version None)
Quarter: 2012Q2

REPORT INFORMATION
  Report Type: 
  Country: None (occurrence: None)
  Receive Date: 20120622
  Receipt Date: 20120620
  Transmission Date: 20120825
  Serious: Yes (Death)
  Sender: FDA-Public Use
  Company Number: US-PFIZER INC-2012148748

PATIENT
  Sex: Female

DRUGS (6)
  1. LIPITOR [Suspect]
     Dosage: UNK
  2. PROCARDIA XL [Suspect]
     Dosage: UNK
  3. GLUCOTROL XL [Suspect]
     Dosage: UNK
  4. ACCUPRIL [Suspect]
     Dosage: UNK
  5. CADUET [Suspect]
     Dosage: UNK
  6. NORVASC [Suspect]
     Dosage: UNK

REACTIONS (1)
  - DEATH [None]
